FAERS Safety Report 6583089-3 (Version None)
Quarter: 2010Q1

REPORT INFORMATION
  Report Type: 
  Country: None (occurrence: None)
  Receive Date: 20100216
  Receipt Date: 20100208
  Transmission Date: 20100710
  Serious: Yes (Death, Life-Threatening)
  Sender: FDA-Public Use
  Company Number: JP-MERCK-1001USA01943

PATIENT
  Age: 73 Year
  Sex: Female

DRUGS (7)
  1. STROMECTOL [Suspect]
     Indication: ACARODERMATITIS
     Route: 048
     Dates: start: 20091127, end: 20091127
  2. STROMECTOL [Suspect]
     Route: 048
     Dates: start: 20091204, end: 20091204
  3. STROMECTOL [Suspect]
     Route: 048
     Dates: start: 20091221, end: 20091221
  4. STROMECTOL [Suspect]
     Route: 048
     Dates: start: 20091213, end: 20091213
  5. TALION [Suspect]
     Indication: PRURITUS
     Route: 048
     Dates: start: 20091127, end: 20091222
  6. EURAX [Concomitant]
     Route: 061
     Dates: start: 20091127, end: 20091210
  7. PROPETO [Concomitant]
     Route: 061
     Dates: start: 20091211

REACTIONS (2)
  - DEATH [None]
  - DECREASED APPETITE [None]
